FAERS Safety Report 15874853 (Version 1)
Quarter: 2019Q1

REPORT INFORMATION
  Report Type: Spontaneous
  Country: FR (occurrence: FR)
  Receive Date: 20190126
  Receipt Date: 20190126
  Transmission Date: 20190417
  Serious: Yes (Hospitalization, Other)
  Sender: FDA-Public Use
  Company Number: FR-ABBVIE-06P-056-0338441-00

PATIENT
  Age: 57 Year
  Sex: Male
  Weight: 49 kg

DRUGS (3)
  1. KALETRA [Suspect]
     Active Substance: LOPINAVIR\RITONAVIR
     Indication: HIV INFECTION
     Dosage: 4 IN AM AND 2 IN PM
     Route: 048
     Dates: start: 20030901
  2. VIREAD [Suspect]
     Active Substance: TENOFOVIR DISOPROXIL FUMARATE
     Indication: HIV INFECTION
     Route: 048
     Dates: start: 20030101, end: 20060408
  3. SUSTIVA [Suspect]
     Active Substance: EFAVIRENZ
     Indication: HIV INFECTION
     Route: 048
     Dates: start: 20030901

REACTIONS (6)
  - Fanconi syndrome [Recovering/Resolving]
  - Aminoaciduria [None]
  - Blood creatine increased [Recovering/Resolving]
  - Hypophosphataemia [Recovering/Resolving]
  - Proteinuria [None]
  - Renal failure [None]

NARRATIVE: CASE EVENT DATE: 20041201
